FAERS Safety Report 8136906-X (Version None)
Quarter: 2012Q1

REPORT INFORMATION
  Report Type: 
  Country: None (occurrence: None)
  Receive Date: 20120214
  Receipt Date: 20110317
  Transmission Date: 20120608
  Serious: Yes (Hospitalization, Disabling)
  Sender: FDA-Public Use
  Company Number: JP-CELGENEUS-087-CCAZA-11032016

PATIENT
  Sex: Female

DRUGS (8)
  1. MAGMITT [Concomitant]
     Indication: CONSTIPATION
     Dosage: PROPER QUANTITY
     Route: 048
     Dates: start: 20110105
  2. EXJADE [Concomitant]
     Indication: IRON OVERLOAD
     Dosage: 250 MILLIGRAM
     Route: 048
     Dates: start: 20110131
  3. AZACITIDINE [Suspect]
     Dosage: 75 MILLIGRAM/SQ. METER
     Route: 058
     Dates: start: 20110202, end: 20110208
  4. KYTRIL [Concomitant]
     Dosage: 1 MILLIGRAM
     Route: 048
     Dates: start: 20110202
  5. AZACITIDINE [Suspect]
     Dosage: 75 MILLIGRAM/SQ. METER
     Route: 058
     Dates: start: 20110104, end: 20110110
  6. AZACITIDINE [Suspect]
     Dosage: 75 MILLIGRAM/SQ. METER
     Route: 058
     Dates: start: 20110302, end: 20110308
  7. LENDORMIN [Concomitant]
     Dosage: .125 MILLIGRAM
     Route: 048
     Dates: start: 20080725
  8. LASIX [Concomitant]
     Indication: CARDIAC FAILURE
     Dosage: 20 MILLIGRAM
     Route: 048
     Dates: start: 20101218

REACTIONS (3)
  - CARDIAC FAILURE [None]
  - DEMENTIA ALZHEIMER'S TYPE [None]
  - PNEUMONIA [None]
